FAERS Safety Report 4522236-1 (Version None)
Quarter: 2004Q4

REPORT INFORMATION
  Report Type: 
  Country: None (occurrence: None)
  Receive Date: 20041206
  Receipt Date: 20041123
  Transmission Date: 20050328
  Serious: No
  Sender: FDA-Public Use
  Company Number: 2004UW24364

PATIENT
  Age: 87 Year
  Sex: Female
  Weight: 72.57 kg

DRUGS (5)
  1. TAMOXIFEN CITRATE [Suspect]
     Indication: BREAST CANCER
     Dates: start: 19940101, end: 19940101
  2. PRINZIDE [Concomitant]
  3. VITAMIN E [Concomitant]
  4. MULTI-VITAMIN [Concomitant]
  5. QUININE [Concomitant]

REACTIONS (5)
  - CATARACT OPERATION [None]
  - GASTRIC DISORDER [None]
  - INTESTINAL OPERATION [None]
  - MAMMOGRAM ABNORMAL [None]
  - VAGINAL DISCHARGE [None]
